FAERS Safety Report 6386049-0 (Version None)
Quarter: 2009Q4

REPORT INFORMATION
  Report Type: 
  Country: None (occurrence: None)
  Receive Date: 20091002
  Receipt Date: 20081103
  Transmission Date: 20100525
  Serious: No
  Sender: FDA-Public Use
  Company Number: US-ASTRAZENECA-2008UW24897

PATIENT
  Age: 55 Year
  Sex: Female
  Weight: 122.5 kg

DRUGS (8)
  1. ARIMIDEX [Suspect]
     Indication: BREAST CANCER
     Dosage: UNKNOWN
     Route: 048
     Dates: start: 20060501
  2. REQUIP [Concomitant]
  3. METFORMIN [Concomitant]
  4. GLYBURIDE [Concomitant]
  5. LORAZEPAM [Concomitant]
  6. CELEBREX [Concomitant]
  7. TOPAMAX [Concomitant]
  8. DARVON-N [Concomitant]

REACTIONS (5)
  - ARTHRALGIA [None]
  - DIARRHOEA [None]
  - HEADACHE [None]
  - ILL-DEFINED DISORDER [None]
  - WEIGHT INCREASED [None]
